FAERS Safety Report 6197955-4 (Version None)
Quarter: 2009Q2

REPORT INFORMATION
  Report Type: 
  Country: None (occurrence: None)
  Receive Date: 20090521
  Receipt Date: 20090513
  Transmission Date: 20091009
  Serious: Yes (Hospitalization)
  Sender: FDA-Public Use
  Company Number: B0573533A

PATIENT
  Sex: Female

DRUGS (6)
  1. LAMICTAL [Suspect]
     Indication: EPILEPSY
     Dosage: 25MG PER DAY
     Route: 048
     Dates: start: 20090424, end: 20090508
  2. EXCEGRAN [Concomitant]
     Dosage: 400MG PER DAY
     Route: 048
  3. CLOBAZAM [Concomitant]
     Dosage: 300MG PER DAY
     Route: 048
  4. ALEVIATIN [Concomitant]
     Route: 048
  5. HYDANTOL [Concomitant]
     Route: 048
  6. DEPAKENE [Concomitant]
     Route: 048

REACTIONS (7)
  - ERYTHEMA MULTIFORME [None]
  - EYE PAIN [None]
  - HYPERAEMIA [None]
  - MUCOUS MEMBRANE DISORDER [None]
  - OCULAR HYPERAEMIA [None]
  - PYREXIA [None]
  - RASH [None]
